FAERS Safety Report 18123324 (Version 1)
Quarter: 2020Q3

REPORT INFORMATION
  Report Type: Spontaneous
  Country: US (occurrence: US)
  Receive Date: 20200807
  Receipt Date: 20200807
  Transmission Date: 20201103
  Serious: No
  Sender: FDA-Public Use
  Company Number: US-SA-2020SA204389

PATIENT

DRUGS (1)
  1. FABRAZYME [Suspect]
     Active Substance: AGALSIDASE BETA
     Indication: FABRY^S DISEASE
     Dosage: 1 MG/KG, QOW
     Route: 041

REACTIONS (6)
  - Oxygen saturation decreased [Unknown]
  - Anxiety [Unknown]
  - Throat irritation [Unknown]
  - Lip swelling [Unknown]
  - Pallor [Unknown]
  - Swelling face [Unknown]
